FAERS Safety Report 4614875-4 (Version None)
Quarter: 2005Q1

REPORT INFORMATION
  Report Type: 
  Country: None (occurrence: None)
  Receive Date: 20050322
  Receipt Date: 20050314
  Transmission Date: 20050727
  Serious: Yes (Other)
  Sender: FDA-Public Use
  Company Number: GB-BRISTOL-MYERS SQUIBB COMPANY-12896098

PATIENT
  Age: 45 Year
  Sex: Male

DRUGS (7)
  1. ANATENSOL [Suspect]
     Route: 030
  2. RISPERDAL [Suspect]
     Indication: SCHIZOPHRENIA
     Route: 048
  3. EPILIM [Concomitant]
  4. PROCYCLIDINE HYDROCHLORIDE 2MG TAB [Concomitant]
  5. LEVOTHYROXINE [Concomitant]
  6. ZOPICLONE [Concomitant]
  7. BRUFEN [Concomitant]

REACTIONS (1)
  - EJACULATION DISORDER [None]
